FAERS Safety Report 10073377 (Version 1)
Quarter: 2014Q2

REPORT INFORMATION
  Report Type: Spontaneous
  Country: US (occurrence: US)
  Receive Date: 20140411
  Receipt Date: 20140411
  Transmission Date: 20141212
  Serious: Yes (Other)
  Sender: FDA-Public Use
  Company Number: US-TEVA-474175USA

PATIENT
  Sex: Male

DRUGS (4)
  1. QVAR [Suspect]
     Indication: COUGH
  2. FREON [Suspect]
  3. LAWN FERTILIZER [Suspect]
  4. UNSPECIFIED [Concomitant]
     Indication: PAIN

REACTIONS (21)
  - Spinal operation [Unknown]
  - Upper respiratory tract infection [Unknown]
  - Laryngitis [Unknown]
  - Sinusitis [Unknown]
  - Rhinitis [Unknown]
  - Tooth disorder [Unknown]
  - Dry mouth [Unknown]
  - Gingival disorder [Unknown]
  - Breath odour [Unknown]
  - Peripheral vascular disorder [Unknown]
  - Lymphatic disorder [Unknown]
  - Generalised oedema [Not Recovered/Not Resolved]
  - Blood alcohol abnormal [Unknown]
  - Palpitations [Unknown]
  - Anhidrosis [Unknown]
  - Chest discomfort [Unknown]
  - Musculoskeletal disorder [Unknown]
  - Dysphonia [Unknown]
  - Pain in extremity [Unknown]
  - Back pain [Unknown]
  - Off label use [Unknown]
